FAERS Safety Report 9235888 (Version 2)
Quarter: 2013Q2

REPORT INFORMATION
  Report Type: Spontaneous
  Country: JP (occurrence: JP)
  Receive Date: 20130417
  Receipt Date: 20130517
  Transmission Date: 20140414
  Serious: Yes (Other)
  Sender: FDA-Public Use
  Company Number: JP-ASTELLAS-2013JP004883

PATIENT
  Sex: Female

DRUGS (10)
  1. VESICARE [Suspect]
     Dosage: 5 MG, UID/QD
     Route: 048
  2. NEODOPASOL [Concomitant]
     Route: 048
  3. COMTAN [Concomitant]
     Route: 048
  4. ARTANE [Concomitant]
     Route: 048
  5. PAXIL [Concomitant]
     Route: 048
  6. LENDORMIN [Concomitant]
     Route: 048
  7. BENZALIN                           /00036201/ [Concomitant]
     Route: 048
  8. YOKUKAN-SAN [Concomitant]
     Route: 048
  9. BLOPRESS [Concomitant]
     Route: 048
  10. ATELEC [Concomitant]
     Route: 048

REACTIONS (1)
  - Asthenia [Recovered/Resolved]
